FAERS Safety Report 20933178 (Version 1)
Quarter: 2022Q2

REPORT INFORMATION
  Report Type: Spontaneous
  Country: US (occurrence: US)
  Receive Date: 20220608
  Receipt Date: 20220608
  Transmission Date: 20220721
  Serious: Yes (Death, Hospitalization)
  Sender: FDA-Public Use
  Company Number: US-PFIZER INC-202200808871

PATIENT
  Age: 84 Year
  Sex: Female
  Weight: 68.04 kg

DRUGS (2)
  1. TIKOSYN [Suspect]
     Active Substance: DOFETILIDE
     Indication: Cardiac disorder
     Dosage: 250 UG, 2X/DAY
     Route: 048
     Dates: start: 2019, end: 20220524
  2. TOVIAZ [Suspect]
     Active Substance: FESOTERODINE FUMARATE
     Indication: Bladder disorder
     Dosage: 8 MG, 1X/DAY
     Route: 048
     Dates: start: 2021, end: 20220524

REACTIONS (3)
  - Pneumonia [Fatal]
  - Cardiac disorder [Fatal]
  - Multiple organ dysfunction syndrome [Fatal]
